FAERS Safety Report 19072739 (Version 1)
Quarter: 2021Q1

REPORT INFORMATION
  Report Type: Spontaneous
  Country: US (occurrence: US)
  Receive Date: 20210330
  Receipt Date: 20210330
  Transmission Date: 20210420
  Serious: No
  Sender: FDA-Public Use
  Company Number: US-BAUSCH-BL-2021-007136

PATIENT
  Age: 62 Year
  Sex: Male

DRUGS (1)
  1. LUMIFY [Suspect]
     Active Substance: BRIMONIDINE TARTRATE
     Indication: OCULAR HYPERAEMIA
     Dosage: ABOUT 1 WEEK AGO
     Route: 047
     Dates: start: 202102, end: 20210225

REACTIONS (3)
  - Eye irritation [Not Recovered/Not Resolved]
  - Drug ineffective [Unknown]
  - Eye pruritus [Not Recovered/Not Resolved]

NARRATIVE: CASE EVENT DATE: 202102
